FAERS Safety Report 5169251-5 (Version None)
Quarter: 2006Q4

REPORT INFORMATION
  Report Type: 
  Country: None (occurrence: None)
  Receive Date: 20061211
  Receipt Date: 20061030
  Transmission Date: 20070319
  Serious: Yes (Hospitalization)
  Sender: FDA-Public Use
  Company Number: US-SANOFI-SYNTHELABO-F03200600243

PATIENT
  Sex: Female

DRUGS (5)
  1. FLUOROURACIL [Suspect]
     Dosage: OVER 24 HOURS/MONDAY-FRIDAY FOR 5 WEEKS
     Route: 042
     Dates: start: 20061002, end: 20061006
  2. OXALIPLATIN [Suspect]
     Indication: OESOPHAGEAL CARCINOMA
     Route: 042
     Dates: start: 20061002, end: 20061002
  3. FENTANYL TRANSDERMAL SYSTEM [Concomitant]
     Route: 061
  4. DILTIAZEM HCL [Concomitant]
     Route: 048
     Dates: start: 20061001, end: 20061001
  5. DIGOXIN [Concomitant]
     Route: 048
     Dates: start: 20061001

REACTIONS (3)
  - ASTHENIA [None]
  - ATRIAL FIBRILLATION [None]
  - SYNCOPE [None]
